FAERS Safety Report 9046219 (Version 2)
Quarter: 2013Q1

REPORT INFORMATION
  Report Type: Spontaneous
  Country: US (occurrence: US)
  Receive Date: 20130201
  Receipt Date: 20130319
  Transmission Date: 20140127
  Serious: Yes (Other)
  Sender: FDA-Public Use
  Company Number: PHEH2013US002308

PATIENT
  Sex: Female

DRUGS (10)
  1. GLEEVEC [Suspect]
     Indication: CHRONIC MYELOID LEUKAEMIA (IN REMISSION)
     Dosage: 400 MG, TWICE A DAY
     Route: 048
     Dates: start: 200105
  2. DIOVAN HCT [Suspect]
     Dosage: 160/12.5 ONCE DAILY
     Route: 048
     Dates: start: 201209
  3. TORSEMIDE [Concomitant]
     Dosage: 200 MG, UNK
  4. SYNTHROID [Concomitant]
     Dosage: 175 UG, UNK
  5. ALLOPURINOL [Concomitant]
     Dosage: UNK UKN, UNK
  6. GLYBURIDE [Concomitant]
     Dosage: 5 MG, UNK
  7. VITAMIN B12 [Concomitant]
     Dosage: UNK UKN, UNK
  8. VITAMIN D3 [Concomitant]
     Dosage: 400 IU, UNK
  9. VITAMIN C [Concomitant]
     Dosage: 500 IU, UNK
  10. GINKGO BILOBA [Concomitant]
     Dosage: UNK UKN, UNK

REACTIONS (2)
  - Anaemia [Unknown]
  - Nasopharyngitis [Unknown]
